FAERS Safety Report 25144470 (Version 2)
Quarter: 2025Q2

REPORT INFORMATION
  Report Type: Report from Study
  Country: CO (occurrence: CO)
  Receive Date: 20250401
  Receipt Date: 20250415
  Transmission Date: 20250717
  Serious: Yes (Hospitalization)
  Sender: NOVARTIS
  Company Number: CO-002147023-NVSC2025CO028989

PATIENT
  Age: 26 Year
  Sex: Male
  Weight: 103 kg

DRUGS (2)
  1. COSENTYX [Suspect]
     Active Substance: SECUKINUMAB
     Indication: Hidradenitis
     Route: 058
     Dates: start: 20241018, end: 20241229
  2. COSENTYX [Suspect]
     Active Substance: SECUKINUMAB
     Route: 065
     Dates: end: 20250126

REACTIONS (8)
  - Herpes zoster [Not Recovered/Not Resolved]
  - Candida infection [Recovering/Resolving]
  - Superinfection fungal [Not Recovered/Not Resolved]
  - Decreased immune responsiveness [Recovering/Resolving]
  - Polymerase chain reaction positive [Recovering/Resolving]
  - Hidradenitis [Recovering/Resolving]
  - Condition aggravated [Recovering/Resolving]
  - Off label use [Unknown]

NARRATIVE: CASE EVENT DATE: 20250205
